FAERS Safety Report 14617213 (Version 2)
Quarter: 2018Q2

REPORT INFORMATION
  Report Type: Spontaneous
  Country: SE (occurrence: SE)
  Receive Date: 20180309
  Receipt Date: 20180626
  Transmission Date: 20180711
  Serious: Yes (Life-Threatening)
  Sender: FDA-Public Use
  Company Number: SE-JNJFOC-20180310142

PATIENT
  Age: 78 Year
  Sex: Male

DRUGS (15)
  1. REPAGLINIDE. [Concomitant]
     Active Substance: REPAGLINIDE
     Route: 065
     Dates: start: 20150507
  2. METOPROLOL. [Concomitant]
     Active Substance: METOPROLOL
     Route: 065
     Dates: start: 20080923
  3. NATRIUMBIKARBONAT [Concomitant]
     Route: 065
     Dates: start: 20151029
  4. PREDNISOLONE. [Concomitant]
     Active Substance: PREDNISOLONE
     Route: 065
     Dates: start: 20180426
  5. SUPREFACT [Concomitant]
     Active Substance: BUSERELIN
     Route: 065
     Dates: start: 20160519
  6. TROMBYL [Concomitant]
     Active Substance: ASPIRIN
     Route: 065
     Dates: start: 20151005
  7. FUROSEMIDE. [Concomitant]
     Active Substance: FUROSEMIDE
     Route: 065
     Dates: start: 20180313
  8. ALLOPURINOL. [Concomitant]
     Active Substance: ALLOPURINOL
     Route: 065
     Dates: start: 20101112
  9. ZYTIGA [Suspect]
     Active Substance: ABIRATERONE ACETATE
     Indication: PROSTATE CANCER RECURRENT
     Route: 048
     Dates: start: 20180426, end: 20180606
  10. BEHEPAN [Concomitant]
     Active Substance: HYDROXOCOBALAMIN
     Route: 065
     Dates: start: 20101115
  11. OMEPRAZOLE. [Concomitant]
     Active Substance: OMEPRAZOLE
     Route: 065
     Dates: start: 20180426
  12. DOXAZOSIN [Concomitant]
     Active Substance: DOXAZOSIN\DOXAZOSIN MESYLATE
     Route: 065
     Dates: start: 20160419
  13. LERCANIDIPINE [Concomitant]
     Active Substance: LERCANIDIPINE
     Route: 065
     Dates: start: 20161025
  14. ATORVASTATIN [Concomitant]
     Active Substance: ATORVASTATIN
     Route: 065
     Dates: start: 20081118
  15. CANDESARTAN. [Concomitant]
     Active Substance: CANDESARTAN
     Route: 065
     Dates: start: 20100329

REACTIONS (3)
  - Acute myocardial infarction [Not Recovered/Not Resolved]
  - Product use issue [Unknown]
  - Off label use [Unknown]

NARRATIVE: CASE EVENT DATE: 20180606
